FAERS Safety Report 10062222 (Version 2)
Quarter: 2014Q2

REPORT INFORMATION
  Report Type: Spontaneous
  Country: FR (occurrence: FR)
  Receive Date: 20140407
  Receipt Date: 20140407
  Transmission Date: 20141212
  Serious: Yes (Other)
  Sender: FDA-Public Use
  Company Number: FR-ASTRAZENECA-2014SE19253

PATIENT
  Age: 72 Year
  Sex: Male

DRUGS (1)
  1. XEROQUEL [Suspect]
     Route: 048
     Dates: start: 20140107

REACTIONS (1)
  - Urinary retention [Unknown]
